FAERS Safety Report 14429726 (Version 1)
Quarter: 2018Q1

REPORT INFORMATION
  Report Type: Spontaneous
  Country: US (occurrence: US)
  Receive Date: 20180123
  Receipt Date: 20180123
  Transmission Date: 20180509
  Serious: Yes (Hospitalization)
  Sender: FDA-Public Use
  Company Number: None

PATIENT
  Age: 63 Year
  Sex: Male
  Weight: 101.06 kg

DRUGS (2)
  1. DESFLURANE. [Suspect]
     Active Substance: DESFLURANE
     Indication: SURGERY
     Dates: start: 20171103, end: 20171103
  2. MEPERIDINE [Suspect]
     Active Substance: MEPERIDINE
     Indication: SURGERY
     Dosage: FREQUENCY - OTHER
     Route: 042
     Dates: start: 20171103, end: 20171103

REACTIONS (2)
  - Hyperthermia malignant [None]
  - Tremor [None]

NARRATIVE: CASE EVENT DATE: 20171103
